FAERS Safety Report 15233700 (Version 1)
Quarter: 2018Q3

REPORT INFORMATION
  Report Type: Report from Study
  Country: US (occurrence: US)
  Receive Date: 20180802
  Receipt Date: 20180802
  Transmission Date: 20181010
  Serious: Yes (Hospitalization)
  Sender: FDA-Public Use
  Company Number: US-ACTELION-A-NJ2018-176443

PATIENT
  Age: 64 Year
  Sex: Female

DRUGS (13)
  1. PRADAXA [Concomitant]
     Active Substance: DABIGATRAN ETEXILATE MESYLATE
  2. METOPROLOL TARTRATE. [Concomitant]
     Active Substance: METOPROLOL TARTRATE
  3. HYDROMORPHONE [Concomitant]
     Active Substance: HYDROMORPHONE
  4. TRACLEER [Suspect]
     Active Substance: BOSENTAN
     Indication: PULMONARY ARTERIAL HYPERTENSION
     Dosage: 125 MG, UNK
     Route: 048
  5. OXYCODONE/APAP [Concomitant]
     Active Substance: ACETAMINOPHEN\OXYCODONE HYDROCHLORIDE
  6. ILEVRO [Concomitant]
     Active Substance: NEPAFENAC
  7. ELIQUIS [Concomitant]
     Active Substance: APIXABAN
  8. DILTIZEM [Concomitant]
  9. WARFARIN [Concomitant]
     Active Substance: WARFARIN
  10. NEVANAC [Concomitant]
     Active Substance: NEPAFENAC
  11. DIAZEPAM. [Concomitant]
     Active Substance: DIAZEPAM
  12. DUREZOL [Concomitant]
     Active Substance: DIFLUPREDNATE
  13. POLYMYXIN/TRIMETHOPRIM [Concomitant]

REACTIONS (1)
  - Atrial fibrillation [Unknown]
